FAERS Safety Report 10370405 (Version 1)
Quarter: 2014Q3

REPORT INFORMATION
  Report Type: Spontaneous
  Country: US (occurrence: None)
  Receive Date: 20140805
  Receipt Date: 20140805
  Transmission Date: 20150326
  Serious: Yes (Other)
  Sender: FDA-Public Use
  Company Number: US-H14001-14-00326

PATIENT
  Age: 78 Year
  Sex: Male

DRUGS (2)
  1. DONEPEZIL [Suspect]
     Active Substance: DONEPEZIL
     Indication: DEMENTIA ALZHEIMER^S TYPE
     Dosage: (UNKNOWN,REDUNDANT USE), UNKNOWN
  2. RIVASTIGMINE [Suspect]
     Active Substance: RIVASTIGMINE
     Indication: DEMENTIA ALZHEIMER^S TYPE
     Dosage: (UNKNOWN, REDUNDANT USE), UNKNOWN

REACTIONS (2)
  - Blood cholinesterase decreased [None]
  - Toxicity to various agents [None]
